FAERS Safety Report 17969936 (Version 1)
Quarter: 2020Q3

REPORT INFORMATION
  Report Type: Spontaneous
  Country: US (occurrence: US)
  Receive Date: 20200701
  Receipt Date: 20200701
  Transmission Date: 20201103
  Serious: Yes (Other)
  Sender: FDA-Public Use
  Company Number: US-TEVA-2020-US-1240254

PATIENT
  Sex: Male

DRUGS (8)
  1. CYMBALTA [Suspect]
     Active Substance: DULOXETINE HYDROCHLORIDE
     Route: 065
  2. TIVORBEX [Suspect]
     Active Substance: INDOMETHACIN
     Route: 065
  3. OPIOID [Suspect]
     Active Substance: UNSPECIFIED INGREDIENT
     Indication: POST-TRAUMATIC STRESS DISORDER
     Route: 065
  4. KLONOPIN [Suspect]
     Active Substance: CLONAZEPAM
     Indication: POST-TRAUMATIC STRESS DISORDER
     Route: 065
     Dates: start: 20120331, end: 20181207
  5. AMBIEN [Suspect]
     Active Substance: ZOLPIDEM TARTRATE
     Indication: POST-TRAUMATIC STRESS DISORDER
     Route: 065
     Dates: start: 20120331, end: 20181207
  6. XANAX [Suspect]
     Active Substance: ALPRAZOLAM
     Route: 065
  7. NORCO [Suspect]
     Active Substance: ACETAMINOPHEN\HYDROCODONE BITARTRATE
     Indication: LIGAMENT SPRAIN
     Route: 065
     Dates: start: 20120331, end: 20181207
  8. NORCO [Suspect]
     Active Substance: ACETAMINOPHEN\HYDROCODONE BITARTRATE
     Indication: JOINT INJURY

REACTIONS (11)
  - Bedridden [Unknown]
  - Loss of personal independence in daily activities [Unknown]
  - Intellectual disability [Unknown]
  - Prescribed overdose [Unknown]
  - Drug diversion [Unknown]
  - Housebound [Unknown]
  - Drug abuse [Unknown]
  - Overdose [Unknown]
  - Drug dependence [Unknown]
  - Product prescribing issue [Unknown]
  - Product dispensing issue [Unknown]
